FAERS Safety Report 20629401 (Version 2)
Quarter: 2022Q2

REPORT INFORMATION
  Report Type: Report from Study
  Country: NL (occurrence: NL)
  Receive Date: 20220323
  Receipt Date: 20220413
  Transmission Date: 20220721
  Serious: Yes (Death, Hospitalization)
  Sender: FDA-Public Use
  Company Number: NL-NOVARTISPH-NVSC2022NL036958

PATIENT
  Age: 81 Year
  Sex: Female

DRUGS (3)
  1. OCTREOTIDE ACETATE [Suspect]
     Active Substance: OCTREOTIDE ACETATE
     Indication: Diarrhoea
     Dosage: 20 MG/2ML (1.00 UNK, Q4W (PER 4 WEKEN (STRENGTH: 20 MG/2ML))
     Route: 030
  2. OCTREOTIDE ACETATE [Suspect]
     Active Substance: OCTREOTIDE ACETATE
     Indication: Ovarian cancer
     Dosage: 1 DOSAGE FORM, Q4W
     Route: 030
  3. OCTREOTIDE ACETATE [Suspect]
     Active Substance: OCTREOTIDE ACETATE

REACTIONS (6)
  - Death [Fatal]
  - Pain in extremity [Unknown]
  - Dehydration [Not Recovered/Not Resolved]
  - Cardiovascular disorder [Unknown]
  - Angiopathy [Unknown]
  - Product use in unapproved indication [Unknown]

NARRATIVE: CASE EVENT DATE: 20220214
